FAERS Safety Report 18943172 (Version 1)
Quarter: 2021Q1

REPORT INFORMATION
  Report Type: Spontaneous
  Country: DK (occurrence: DK)
  Receive Date: 20210226
  Receipt Date: 20210226
  Transmission Date: 20210420
  Serious: Yes (Other)
  Sender: FDA-Public Use
  Company Number: DK-TEVA-2021-DK-1882916

PATIENT
  Age: 79 Year
  Sex: Female

DRUGS (9)
  1. IMOZOP [Suspect]
     Active Substance: ZOPICLONE
     Indication: INSOMNIA
     Dosage: 7.5 MG
     Route: 048
     Dates: start: 20181208, end: 20201223
  2. OXAZEPAM ^ALTERNOVA^ [Suspect]
     Active Substance: OXAZEPAM
     Indication: SEDATIVE THERAPY
     Dosage: 45 MG , START DATE UNKNOWN BUT AT LEAST SINCE 13?FEB?2019
     Route: 048
  3. OXYCONTIN [Suspect]
     Active Substance: OXYCODONE HYDROCHLORIDE
     Indication: PAIN
     Dosage: 20 MG , START DATE UNKNOWN BUT AT LEAST SINCE 12?FEB?2019
     Route: 048
  4. CLORIOCARD [Concomitant]
     Active Substance: CLOPIDOGREL HYDROCHLORIDE
     Indication: THROMBOSIS PROPHYLAXIS
     Dates: start: 20180118
  5. ATORVASTATIN ^1A FARMA^ [Concomitant]
     Indication: BLOOD CHOLESTEROL INCREASED
     Dates: start: 20180118
  6. PREGABALIN ^TEVA^ [Suspect]
     Active Substance: PREGABALIN
     Indication: ANXIETY
     Dosage: DOSAGE: 150 MG/ MORNING AND 300MG/EVENING. START DATE UNKNOWN BUT AT LEAST SINCE 12?FEB?2019.
     Route: 048
  7. METOPROLOLSUCCINAT ^HEXAL^ [Concomitant]
     Active Substance: METOPROLOL SUCCINATE
     Indication: HYPERKINETIC HEART SYNDROME
     Dates: start: 20190321
  8. ARITAVI [Suspect]
     Active Substance: DULOXETINE HYDROCHLORIDE
     Indication: NERVOUS SYSTEM DISORDER
     Dosage: UNIT DOSE : 60MG
     Route: 048
     Dates: start: 20180118
  9. MIRTAZAPIN ^ORION^ [Suspect]
     Active Substance: MIRTAZAPINE
     Indication: DEPRESSION
     Dosage: 30MG , START DATE UNKNOWN BUT AT LEAST SINCE 12?FEB?2019.
     Route: 048

REACTIONS (4)
  - Irregular breathing [Recovered/Resolved]
  - Toxicity to various agents [Unknown]
  - Disorientation [Recovered/Resolved]
  - Depressed level of consciousness [Recovered/Resolved]

NARRATIVE: CASE EVENT DATE: 20201217
